FAERS Safety Report 8790090 (Version 1)
Quarter: 2012Q4

REPORT INFORMATION
  Report Type: 
  Country: US (occurrence: US)
  Receive Date: 20120917
  Receipt Date: 20120917
  Transmission Date: 20130627
  Serious: Yes (Hospitalization)
  Sender: FDA-Public Use
  Company Number: US-BAYER-2012-095426

PATIENT
  Age: 82 Year
  Sex: Female

DRUGS (1)
  1. AVELOX [Suspect]
     Dosage: 500 mg, 5ID
     Route: 048
     Dates: start: 20120906

REACTIONS (2)
  - Lethargy [Recovered/Resolved]
  - Mental status changes [Recovered/Resolved]
